FAERS Safety Report 13037041 (Version 1)
Quarter: 2016Q4

REPORT INFORMATION
  Report Type: Spontaneous
  Country: US (occurrence: US)
  Receive Date: 20161216
  Receipt Date: 20161216
  Transmission Date: 20170207
  Serious: No
  Sender: FDA-Public Use
  Company Number: US-SHIRE-US201619510

PATIENT
  Age: 69 Year
  Sex: Female
  Weight: 50.79 kg

DRUGS (1)
  1. XIIDRA [Suspect]
     Active Substance: LIFITEGRAST
     Indication: DRY EYE
     Dosage: 1 GTT (IN BOTH EYES), 2X/DAY:BID
     Route: 047
     Dates: start: 201611, end: 2016

REACTIONS (3)
  - Ocular hyperaemia [Not Recovered/Not Resolved]
  - Unevaluable event [Recovering/Resolving]
  - Dry skin [Recovering/Resolving]

NARRATIVE: CASE EVENT DATE: 2016
